FAERS Safety Report 23896216 (Version 1)
Quarter: 2024Q2

REPORT INFORMATION
  Report Type: Spontaneous
  Country: US (occurrence: US)
  Receive Date: 20240524
  Receipt Date: 20240524
  Transmission Date: 20240715
  Serious: Yes (Hospitalization)
  Sender: FDA-Public Use
  Company Number: US-BoehringerIngelheim-2024-BI-029293

PATIENT
  Sex: Male

DRUGS (22)
  1. JARDIANCE [Suspect]
     Active Substance: EMPAGLIFLOZIN
     Indication: Product used for unknown indication
     Dosage: DAILY DOSE: 25 MILLIGRAM(S)
  2. ASPIRIN [Suspect]
     Active Substance: ASPIRIN
     Indication: Thrombosis
  3. ATENOLOL [Suspect]
     Active Substance: ATENOLOL
     Indication: Blood pressure measurement
  4. BUMETANIDE [Suspect]
     Active Substance: BUMETANIDE
     Indication: Electrolyte imbalance
  5. TAMSULOSIN [Concomitant]
     Active Substance: TAMSULOSIN
     Indication: Prostatic disorder
  6. VYNDAMAX [Concomitant]
     Active Substance: TAFAMIDIS
     Indication: Blood disorder
  7. ELIQUIS [Concomitant]
     Active Substance: APIXABAN
     Indication: Thrombosis
  8. MENTHOL [Concomitant]
     Active Substance: MENTHOL
     Indication: Pain in extremity
  9. COLCHICINE [Concomitant]
     Active Substance: COLCHICINE
     Indication: Cardiac disorder
  10. ENTRESTO [Concomitant]
     Active Substance: SACUBITRIL\VALSARTAN
     Indication: Product used for unknown indication
  11. LINZESS [Concomitant]
     Active Substance: LINACLOTIDE
     Indication: Bowel movement irregularity
  12. MINOXIDIL [Concomitant]
     Active Substance: MINOXIDIL
     Indication: Blood pressure measurement
  13. POTASSIUM [Concomitant]
     Active Substance: POTASSIUM
     Indication: Product used for unknown indication
  14. PRAVASTATIN [Concomitant]
     Active Substance: PRAVASTATIN
     Indication: Product used for unknown indication
  15. SPIRONOLACTONE [Concomitant]
     Active Substance: SPIRONOLACTONE
     Indication: Product used for unknown indication
  16. TRELEGY ELLIPTA [Concomitant]
     Active Substance: FLUTICASONE FUROATE\UMECLIDINIUM BROMIDE\VILANTEROL TRIFENATATE
     Indication: Product used for unknown indication
  17. PANTOPRAZOLE [Concomitant]
     Active Substance: PANTOPRAZOLE
     Indication: Dyspepsia
  18. IRON [Concomitant]
     Active Substance: IRON
     Indication: Product used for unknown indication
  19. VITAMIN A [Concomitant]
     Active Substance: VITAMIN A
     Indication: Product used for unknown indication
  20. VALSARTAN [Concomitant]
     Active Substance: VALSARTAN
     Indication: Product used for unknown indication
  21. TRIAMTERENE [Concomitant]
     Active Substance: TRIAMTERENE
     Indication: Product used for unknown indication
  22. AMVUTTRA [Concomitant]
     Active Substance: VUTRISIRAN
     Indication: Product used for unknown indication
     Dosage: 25MG Q3MOS

REACTIONS (2)
  - Back pain [Recovered/Resolved]
  - Somnolence [Recovered/Resolved]
